FAERS Safety Report 14752873 (Version 4)
Quarter: 2018Q2

REPORT INFORMATION
  Report Type: Report from Study
  Country: US (occurrence: US)
  Receive Date: 20180412
  Receipt Date: 20180618
  Transmission Date: 20180711
  Serious: Yes (Hospitalization)
  Sender: FDA-Public Use
  Company Number: US-ALLERGAN-1812525US

PATIENT
  Age: 9 Year
  Sex: Female
  Weight: 58 kg

DRUGS (10)
  1. FLOVENT HFA [Concomitant]
     Active Substance: FLUTICASONE PROPIONATE
     Indication: PRODUCT USED FOR UNKNOWN INDICATION
     Dosage: 1 PUFF, BID
     Route: 055
     Dates: start: 20170908
  2. SINGULAIR [Concomitant]
     Active Substance: MONTELUKAST SODIUM
     Indication: PRODUCT USED FOR UNKNOWN INDICATION
     Dosage: 5 MG, QHS
     Route: 048
     Dates: start: 20170908
  3. DITROPAN [Concomitant]
     Active Substance: OXYBUTYNIN CHLORIDE
     Indication: PRODUCT USED FOR UNKNOWN INDICATION
     Dosage: 5 MG, QD
     Route: 048
     Dates: start: 20180124
  4. CLARITIN [Concomitant]
     Active Substance: LORATADINE
     Indication: PRODUCT USED FOR UNKNOWN INDICATION
     Dosage: 10 MG, PRN
     Route: 048
     Dates: start: 20170908
  5. MIRALAX [Concomitant]
     Active Substance: POLYETHYLENE GLYCOL 3350
     Indication: PRODUCT USED FOR UNKNOWN INDICATION
     Dosage: UNK UNK, PRN
     Route: 048
  6. ZOFRAN [Concomitant]
     Active Substance: ONDANSETRON HYDROCHLORIDE
     Indication: PRODUCT USED FOR UNKNOWN INDICATION
     Dosage: 4 MG, UNK
     Dates: start: 20170613
  7. OXYBUTYNIN 100MG GEL [Suspect]
     Active Substance: OXYBUTYNIN
     Indication: NEUROGENIC BLADDER
     Dosage: 0.75 G, QD
     Route: 061
     Dates: start: 20180213
  8. VENTOLIN HFA [Concomitant]
     Active Substance: ALBUTEROL SULFATE
     Indication: WHEEZING
     Dosage: 2 PUFFS, EVERY 4 HOURS PRN
     Route: 055
     Dates: start: 20170831
  9. MACRODANTIN [Concomitant]
     Active Substance: NITROFURANTOIN
     Indication: PRODUCT USED FOR UNKNOWN INDICATION
     Dosage: 50 MG, QD
     Route: 048
     Dates: start: 20180106
  10. ADVIL [Concomitant]
     Active Substance: IBUPROFEN
     Indication: PYREXIA
     Dosage: 100MG/5ML EVERY SIX HOURS AS NEEDED
     Route: 048

REACTIONS (2)
  - Urosepsis [Recovered/Resolved]
  - Hydronephrosis [Recovered/Resolved with Sequelae]

NARRATIVE: CASE EVENT DATE: 20180301
